FAERS Safety Report 9031702 (Version 2)
Quarter: 2013Q1

REPORT INFORMATION
  Report Type: Report from Study
  Country: US (occurrence: US)
  Receive Date: 20130124
  Receipt Date: 20130304
  Transmission Date: 20140127
  Serious: Yes (Other)
  Sender: FDA-Public Use
  Company Number: US-ABBOTT-12P-163-1024845-00

PATIENT
  Sex: Male
  Weight: 82.63 kg

DRUGS (3)
  1. HUMIRA [Suspect]
     Indication: CROHN^S DISEASE
     Route: 058
     Dates: start: 20120830, end: 20121219
  2. HUMIRA [Suspect]
     Route: 058
     Dates: start: 20130109
  3. PENTASA [Concomitant]
     Indication: CROHN^S DISEASE

REACTIONS (6)
  - Impaired healing [Recovered/Resolved]
  - Tooth infection [Recovered/Resolved]
  - Toothache [Not Recovered/Not Resolved]
  - Infection [Not Recovered/Not Resolved]
  - Oral disorder [Unknown]
  - Blood creatinine increased [Unknown]
